FAERS Safety Report 9016908 (Version 2)
Quarter: 2013Q1

REPORT INFORMATION
  Report Type: Spontaneous
  Country: US (occurrence: US)
  Receive Date: 20130117
  Receipt Date: 20130131
  Transmission Date: 20140127
  Serious: Yes (Other)
  Sender: FDA-Public Use
  Company Number: US-VERTEX PHARMACEUTICALS INC.-2013-000625

PATIENT
  Age: 46 Year
  Sex: Female

DRUGS (14)
  1. INCIVEK [Suspect]
     Indication: HEPATITIS C
     Dosage: 750 MG, TID
     Route: 048
     Dates: start: 20120817, end: 2012
  2. PEGASYS [Suspect]
     Indication: HEPATITIS C
     Dosage: 180 ?G, UNK
     Dates: start: 20120817
  3. RIBAVIRIN [Suspect]
     Indication: HEPATITIS C
     Dosage: 800 MG QAM, 600 MG QPM
     Dates: start: 20120817
  4. ADVAIR [Suspect]
  5. OMEPRAZOLE [Concomitant]
     Dosage: 20 MG, QD
  6. ALBUTEROL [Concomitant]
     Dosage: UNK, PRN
  7. RISPERDAL [Concomitant]
     Dosage: 2 MG, BID
  8. TRAZODONE [Concomitant]
     Dosage: 50 MG, UNK
  9. KLONOPIN [Concomitant]
     Dosage: 2 MG AM AND 1 MG
  10. ATROVENT HFA [Concomitant]
  11. COMBIVENT [Concomitant]
  12. THEOPHYLLINE [Concomitant]
  13. SINGULAIR [Concomitant]
  14. ZOFRAN [Concomitant]
     Dosage: 4 MG, PRN

REACTIONS (4)
  - Deep vein thrombosis [Unknown]
  - Cushing^s syndrome [Not Recovered/Not Resolved]
  - Swelling face [Recovered/Resolved]
  - Drug interaction [Unknown]
